FAERS Safety Report 12899748 (Version 1)
Quarter: 2016Q4

REPORT INFORMATION
  Report Type: Spontaneous
  Country: US (occurrence: US)
  Receive Date: 20161101
  Receipt Date: 20161101
  Transmission Date: 20170207
  Serious: No
  Sender: FDA-Public Use
  Company Number: US-PFIZER INC-2016504246

PATIENT
  Age: 64 Year
  Sex: Female

DRUGS (1)
  1. IBRANCE [Suspect]
     Active Substance: PALBOCICLIB
     Dosage: 125 MG, ONCE DAILY, 21DAYS ON THEN 1 WEEK OFF
     Route: 048
     Dates: start: 20161014, end: 20161026

REACTIONS (2)
  - Condition aggravated [Unknown]
  - Fatigue [Unknown]
